FAERS Safety Report 18946320 (Version 2)
Quarter: 2021Q1

REPORT INFORMATION
  Report Type: Spontaneous
  Country: AU (occurrence: AU)
  Receive Date: 20210226
  Receipt Date: 20210331
  Transmission Date: 20210420
  Serious: Yes (Other)
  Sender: FDA-Public Use
  Company Number: AU-PFIZER INC-2021161915

PATIENT
  Weight: 42.7 kg

DRUGS (20)
  1. MITOXANTRONE [Concomitant]
     Active Substance: MITOXANTRONE HYDROCHLORIDE
     Indication: ACUTE MYELOID LEUKAEMIA
     Dosage: 12 MG/M2, 1X/DAY (IN D./QUOTID/O.D)
     Route: 042
     Dates: start: 20210115, end: 20210118
  2. ONDANSETRON [Concomitant]
     Active Substance: ONDANSETRON
     Indication: NAUSEA
     Dosage: 8 MG, 3X/DAY
     Dates: start: 20210115, end: 20210124
  3. LORAZEPAM. [Concomitant]
     Active Substance: LORAZEPAM
     Indication: NAUSEA
     Dosage: 1 MG, AS NEEDED
     Dates: start: 20210116
  4. OSMOLAX [LACTULOSE] [Concomitant]
     Active Substance: LACTULOSE
     Indication: CONSTIPATION
     Dosage: 17 G, 1X/DAY
     Dates: start: 20210120, end: 20210122
  5. PARACETAMOL [Concomitant]
     Active Substance: ACETAMINOPHEN
     Indication: PAIN
  6. GEMTUZUMAB OZOGAMICIN [Concomitant]
     Active Substance: GEMTUZUMAB OZOGAMICIN
     Indication: ACUTE MYELOID LEUKAEMIA
     Dosage: 4.2 MG (OTHER)
     Route: 042
     Dates: start: 20210119, end: 20210119
  7. METOCLOPRAMIDE. [Concomitant]
     Active Substance: METOCLOPRAMIDE
     Indication: NAUSEA
     Dosage: 5 MG, 3X/DAY
     Dates: start: 20210124
  8. OMEPRAZOLE. [Concomitant]
     Active Substance: OMEPRAZOLE
     Indication: PROPHYLAXIS
     Dosage: 40 MG, 1X/DAY
     Dates: start: 20210125, end: 20210129
  9. OXYCODONE [Concomitant]
     Active Substance: OXYCODONE
     Indication: PAIN
     Dosage: 5 MG, AS NEEDED
     Dates: start: 20210115
  10. GRANISETRON [Concomitant]
     Active Substance: GRANISETRON
     Indication: NAUSEA
     Dosage: 1.8 MG, 1X/DAY
     Dates: start: 20210124
  11. AMBISOME [Concomitant]
     Active Substance: AMPHOTERICIN B
     Indication: ANTIFUNGAL PROPHYLAXIS
     Dosage: 50 MG, 1X/DAY
     Dates: start: 20210125
  12. LIGNOCAINE [LIDOCAINE] [Concomitant]
     Active Substance: LIDOCAINE
     Indication: MUCOSAL INFLAMMATION
     Dosage: 5 ML, 2X/DAY
     Dates: start: 20210125, end: 20210129
  13. CENTRUM ADVANCE [Concomitant]
     Active Substance: VITAMINS
     Indication: HYPOPHAGIA
     Dosage: 1 DF, 1X/DAY
     Dates: start: 20210128, end: 20210201
  14. SODIUM CHLORIDE 0.9% [Concomitant]
     Active Substance: SODIUM CHLORIDE
     Indication: SEPSIS
     Dosage: 420 ML, 1X/DAY
     Dates: start: 20210202, end: 20210202
  15. GENTAMICIN SULFATE. [Suspect]
     Active Substance: GENTAMICIN SULFATE
     Indication: FEBRILE NEUTROPENIA
     Dosage: 250 MG, 1X/DAY
     Dates: start: 20210202, end: 20210202
  16. VANCOMYCIN HCL [Suspect]
     Active Substance: VANCOMYCIN HYDROCHLORIDE
     Indication: FEBRILE NEUTROPENIA
     Dosage: 640 MG, 4X/DAY
     Dates: start: 20210202
  17. CYCLIZINE [Concomitant]
     Active Substance: CYCLIZINE
     Indication: NAUSEA
     Dosage: 40 MG, 3X/DAY
     Dates: start: 20210115, end: 20210120
  18. TRIMETHOPRIM SULFAMETHOXAZOLE [Concomitant]
     Active Substance: SULFAMETHOXAZOLE\TRIMETHOPRIM
     Indication: ANTIFUNGAL PROPHYLAXIS
     Dosage: 80 MG, 2X/DAY (MON/TUE/WED ONLY)
     Dates: start: 20210118
  19. PIPERACILLIN/TAZOBACTAM [Suspect]
     Active Substance: PIPERACILLIN SODIUM\TAZOBACTAM SODIUM
     Indication: FEBRILE NEUTROPENIA
     Dosage: 4 G, 4X/DAY
     Dates: start: 20210125
  20. PARACETAMOL [Concomitant]
     Active Substance: ACETAMINOPHEN
     Indication: PYREXIA
     Dosage: 625 MG, 1X/DAY
     Dates: start: 20210126

REACTIONS (3)
  - Septic shock [Unknown]
  - Escherichia infection [Unknown]
  - Drug ineffective [Unknown]
